FAERS Safety Report 6604199-8 (Version None)
Quarter: 2010Q1

REPORT INFORMATION
  Report Type: 
  Country: None (occurrence: None)
  Receive Date: 20100226
  Receipt Date: 20090807
  Transmission Date: 20100710
  Serious: No
  Sender: FDA-Public Use
  Company Number: A0794992A

PATIENT
  Age: 13 Year
  Sex: Male

DRUGS (3)
  1. LAMOTRIGINE [Suspect]
     Dosage: 25MG PER DAY
     Route: 048
     Dates: start: 20090520
  2. ZOLOFT [Concomitant]
  3. FLAGYL [Concomitant]

REACTIONS (3)
  - ANXIETY [None]
  - DEPRESSION [None]
  - DIARRHOEA [None]
